FAERS Safety Report 6423455-X (Version None)
Quarter: 2009Q4

REPORT INFORMATION
  Report Type: 
  Country: None (occurrence: None)
  Receive Date: 20091102
  Receipt Date: 20091023
  Transmission Date: 20100525
  Serious: Yes (Other)
  Sender: FDA-Public Use
  Company Number: B0599689A

PATIENT
  Sex: Male

DRUGS (1)
  1. ROPINIROLE HYDROCHLORIDE [Suspect]
     Indication: PARKINSON'S DISEASE
     Route: 065

REACTIONS (1)
  - SUDDEN ONSET OF SLEEP [None]
